FAERS Safety Report 6931012-1 (Version None)
Quarter: 2010Q3

REPORT INFORMATION
  Report Type: 
  Country: None (occurrence: None)
  Receive Date: 20100818
  Receipt Date: 20100813
  Transmission Date: 20110219
  Serious: Yes (Other)
  Sender: FDA-Public Use
  Company Number: HQWYE126204FEB05

PATIENT
  Sex: Female

DRUGS (7)
  1. PREMPRO [Suspect]
     Indication: MENOPAUSAL SYMPTOMS
  2. CYCRIN [Suspect]
     Indication: MENOPAUSAL SYMPTOMS
  3. ZOCOR [Concomitant]
  4. COREG [Concomitant]
     Indication: HYPERTENSION
  5. MICARDIS [Concomitant]
     Indication: HYPERTENSION
  6. PREMARIN [Suspect]
     Indication: MENOPAUSAL SYMPTOMS
  7. LOESTRIN 1.5/30 [Concomitant]
     Indication: ABNORMAL WITHDRAWAL BLEEDING

REACTIONS (2)
  - BREAST CANCER METASTATIC [None]
  - MULTIPLE MYELOMA [None]
